FAERS Safety Report 7527697-1 (Version None)
Quarter: 2011Q2

REPORT INFORMATION
  Report Type: 
  Country: None (occurrence: None)
  Receive Date: 20110607
  Receipt Date: 20110524
  Transmission Date: 20111010
  Serious: Yes (Other)
  Sender: FDA-Public Use
  Company Number: PHHY2011CA28199

PATIENT

DRUGS (1)
  1. ALISKIREN [Suspect]
     Dosage: UNK UKN, UNK
     Dates: end: 20100101

REACTIONS (2)
  - DIABETES MELLITUS [None]
  - DIABETIC NEPHROPATHY [None]
